FAERS Safety Report 6380961-4 (Version None)
Quarter: 2009Q3

REPORT INFORMATION
  Report Type: 
  Country: None (occurrence: None)
  Receive Date: 20090929
  Receipt Date: 20090921
  Transmission Date: 20100115
  Serious: Yes (Hospitalization)
  Sender: FDA-Public Use
  Company Number: US-SANOFI-SYNTHELABO-A03200903332

PATIENT
  Age: 67 Year
  Sex: Male
  Weight: 90.7 kg

DRUGS (8)
  1. AVASTIN [Suspect]
     Dosage: UNK
     Route: 065
     Dates: start: 20090702, end: 20090101
  2. XELODA [Suspect]
     Indication: COLON CANCER
     Dosage: TAKEN FIRST 14 DAYS OF 21 DAY CYCLE
     Route: 065
     Dates: start: 20090702, end: 20090718
  3. ELOXATIN [Suspect]
     Indication: COLON CANCER
     Route: 042
     Dates: start: 20090702, end: 20090702
  4. ELOXATIN [Suspect]
     Route: 042
     Dates: start: 20090902, end: 20090902
  5. XANAX [Concomitant]
     Indication: ANXIETY
     Dosage: UNK
     Route: 065
     Dates: start: 20090401
  6. SINEMET [Concomitant]
     Indication: PARKINSON'S DISEASE
     Dosage: UNK
     Route: 065
     Dates: start: 20090201
  7. REQUIP [Concomitant]
     Indication: PARKINSON'S DISEASE
     Dosage: UNK
     Route: 065
  8. ALOXI [Concomitant]
     Indication: NAUSEA
     Dosage: UNK
     Route: 065

REACTIONS (11)
  - DYSPHAGIA [None]
  - EYELID PTOSIS [None]
  - FOREIGN BODY TRAUMA [None]
  - GASTROINTESTINAL DISORDER [None]
  - HYPOAESTHESIA ORAL [None]
  - LACRIMATION INCREASED [None]
  - LIP SWELLING [None]
  - PARAESTHESIA ORAL [None]
  - SPEECH DISORDER [None]
  - TRANSIENT ISCHAEMIC ATTACK [None]
  - TREMOR [None]
